FAERS Safety Report 15580638 (Version 2)
Quarter: 2021Q2

REPORT INFORMATION
  Report Type: Spontaneous
  Country: FR (occurrence: FR)
  Receive Date: 20181102
  Receipt Date: 20210427
  Transmission Date: 20210716
  Serious: Yes (Hospitalization)
  Sender: FDA-Public Use
  Company Number: FR-TEVA-E2B_00000037

PATIENT
  Age: 63 Year
  Sex: Female
  Weight: 70 kg

DRUGS (4)
  1. AMOXICILLINE BASE [Suspect]
     Active Substance: AMOXICILLIN
     Indication: ERYSIPELAS
     Dosage: NP
     Route: 048
     Dates: start: 20180802, end: 20180810
  2. AUGMENTIN [Suspect]
     Active Substance: AMOXICILLIN\CLAVULANATE POTASSIUM
     Indication: ERYSIPELAS
     Dosage: NP
     Route: 048
     Dates: start: 20180810, end: 20180820
  3. TRIFLUCAN [Concomitant]
     Active Substance: FLUCONAZOLE
     Indication: ERYSIPELAS
     Dosage: NP
     Route: 048
     Dates: start: 20180820, end: 20180821
  4. PYOSTACINE [Concomitant]
     Active Substance: PRISTINAMYCIN
     Indication: ERYSIPELAS
     Dosage: NP
     Route: 048
     Dates: start: 20180820, end: 20180821

REACTIONS (1)
  - Hepatitis acute [Recovering/Resolving]

NARRATIVE: CASE EVENT DATE: 20180821
